FAERS Safety Report 5992896-7 (Version None)
Quarter: 2008Q4

REPORT INFORMATION
  Report Type: 
  Country: None (occurrence: None)
  Receive Date: 20081212
  Receipt Date: 20081201
  Transmission Date: 20090506
  Serious: Yes (Hospitalization)
  Sender: FDA-Public Use
  Company Number: BR-JNJFOC-20081201012

PATIENT

DRUGS (6)
  1. TYLEX [Suspect]
     Indication: DRUG EXPOSURE DURING PREGNANCY
  2. AMOXICILLIN [Suspect]
     Indication: DRUG EXPOSURE DURING PREGNANCY
  3. NIMESULIDE [Suspect]
     Indication: DRUG EXPOSURE DURING PREGNANCY
  4. CORTICOSOL [Suspect]
     Indication: DRUG EXPOSURE DURING PREGNANCY
  5. FOLIC ACID [Suspect]
     Indication: DRUG EXPOSURE DURING PREGNANCY
     Route: 048
  6. NATELLE [Suspect]
     Indication: DRUG EXPOSURE DURING PREGNANCY

REACTIONS (1)
  - JAUNDICE [None]
